FAERS Safety Report 9969445 (Version 1)
Quarter: 2014Q1

REPORT INFORMATION
  Report Type: Spontaneous
  Country: CA (occurrence: CA)
  Receive Date: 20140306
  Receipt Date: 20140306
  Transmission Date: 20141002
  Serious: Yes (Hospitalization)
  Sender: FDA-Public Use
  Company Number: CA-BRISTOL-MYERS SQUIBB COMPANY-20323770

PATIENT
  Age: 54 Year
  Sex: Male

DRUGS (10)
  1. LYSODREN [Suspect]
     Indication: ADRENAL GLAND CANCER
     Dosage: 1 DF= 2 GRAMS 3 TIMES PER DAY.
  2. HYDROCORTISONE [Concomitant]
     Dosage: 1 DF= 20MG IN THE MORNING AND 10MG IN THE AFTERNOON
  3. SODIUM CHLORIDE [Concomitant]
  4. ALBUMIN [Concomitant]
     Route: 042
  5. LACTULOSE [Concomitant]
  6. TYLENOL [Concomitant]
  7. DILAUDID [Concomitant]
  8. DALTEPARIN [Concomitant]
     Dosage: 1 DF=5000 UNITS ONCE DAILY
  9. ZOPICLONE [Concomitant]
     Dosage: ZOPICLONE 7.5MG AT NIGHT
  10. COLACE [Concomitant]

REACTIONS (1)
  - Nephropathy toxic [Unknown]
